FAERS Safety Report 19845463 (Version 1)
Quarter: 2021Q3

REPORT INFORMATION
  Report Type: Spontaneous
  Country: US (occurrence: US)
  Receive Date: 20210916
  Receipt Date: 20210916
  Transmission Date: 20211014
  Serious: Yes (Hospitalization, Other)
  Sender: FDA-Public Use
  Company Number: US-UPSHER-SMITH LABORATORIES, LLC-2021USL00625

PATIENT
  Age: 68 Year
  Sex: Male
  Weight: 89.45 kg

DRUGS (24)
  1. LORAZEPAM. [Concomitant]
     Active Substance: LORAZEPAM
     Dosage: 0.5 MG, 1X/DAY EVERY MORNING
     Route: 048
  2. VENLAFAXINE HCL [Concomitant]
     Active Substance: VENLAFAXINE HYDROCHLORIDE
     Dosage: 150 MG, 1X/DAY WITH BREAKFAST FOR MOOD
     Route: 048
  3. ACLIDINIUM [Concomitant]
     Active Substance: ACLIDINIUM BROMIDE
     Dosage: 400 ?G, 1X/DAY
  4. AMIODARONE HYDROCHLORIDE. [Suspect]
     Active Substance: AMIODARONE HYDROCHLORIDE
     Dosage: 400 MG, 2X/DAY FOR 7 DAYS
     Route: 048
     Dates: start: 2016, end: 2016
  5. AMIODARONE HYDROCHLORIDE. [Suspect]
     Active Substance: AMIODARONE HYDROCHLORIDE
     Indication: ATRIAL FIBRILLATION
     Dosage: 400 MG, 3X/DAY FOR 7 DAYS
     Route: 048
     Dates: start: 2016, end: 2016
  6. PREDNISONE. [Concomitant]
     Active Substance: PREDNISONE
     Dosage: UNK, 1X/DAY
  7. BUDESONIDE. [Concomitant]
     Active Substance: BUDESONIDE
     Dosage: 2 DOSAGE FORM (2 PUFFS), 2X/DAY, FOR BREATHING
  8. SODIUM FLUORIDE. [Concomitant]
     Active Substance: SODIUM FLUORIDE
     Dosage: BRUSH A SMALL AMOUNT ON TEETH AT BEDTIME FOR 2 MINUTES ? FOR PREVENTION OF TEETH CAVITIES
  9. ALBUTEROL SULFATE; IPRATROPIUM BROMIDE [Concomitant]
     Dosage: 1 DOSAGE FORM (1 AMPULE), 4X/DAY AS NEEDED FOR BREATHING
     Dates: start: 2015, end: 20160818
  10. ALBUTEROL SULFATE. [Concomitant]
     Active Substance: ALBUTEROL SULFATE
     Dosage: 2 DOSAGE FORM (2 PUFFS), 4X/DAY AS NEEDED FOR SHORTNESS OF BREATH
     Dates: start: 20081201
  11. CLOBETASOL PROPIONATE. [Concomitant]
     Active Substance: CLOBETASOL PROPIONATE
     Dosage: APPLY A THIN LAYER TOPICALLY, 2X/DAY AS NEEDED FOR SKIN
     Route: 061
  12. AMIODARONE HYDROCHLORIDE. [Suspect]
     Active Substance: AMIODARONE HYDROCHLORIDE
     Dosage: 400 MG, 1X/DAY
     Route: 048
     Dates: start: 2016, end: 2016
  13. ASPIRIN EC [Concomitant]
     Active Substance: ASPIRIN
     Dosage: 81 MG, 1X/DAY
     Route: 048
     Dates: start: 201404
  14. ATORVASTATIN CALCIUM. [Concomitant]
     Active Substance: ATORVASTATIN CALCIUM
     Dosage: 20 MG, 1X/DAY
     Dates: start: 201703
  15. DILTIAZEM. [Concomitant]
     Active Substance: DILTIAZEM
     Dosage: 360 MG, 1X/DAY FOR HEART AND BLOOD PRESSURE
     Route: 048
  16. DILTIAZEM. [Concomitant]
     Active Substance: DILTIAZEM
     Dosage: 120 MG, 1X/DAY
  17. TRAZODONE HYDROCHLORIDE. [Concomitant]
     Active Substance: TRAZODONE HYDROCHLORIDE
     Dosage: 150 MG, 1X/DAY AT BEDTIME FOR MOOD
     Route: 048
  18. APIXABAN [Concomitant]
     Active Substance: APIXABAN
     Dosage: 5 MG, 2X/DAY FOR ANTICOAGULATION
     Dates: start: 201507, end: 201604
  19. DIGOXIN. [Concomitant]
     Active Substance: DIGOXIN
     Dosage: 0.25 MG, 1X/DAY
     Route: 048
  20. FLUTICASONE PROPIONATE. [Concomitant]
     Active Substance: FLUTICASONE PROPIONATE
     Dosage: 100 ?G, 1X/DAY
  21. GUAIFENESIN. [Concomitant]
     Active Substance: GUAIFENESIN
     Dosage: 400 MG, 3X/DAY IF NEEDED FOR CONGESTION
     Route: 048
  22. SILDENAFIL CITRATE. [Concomitant]
     Active Substance: SILDENAFIL CITRATE
     Dosage: 100 MG, AS NEEDED APPROXIMATELY 1 HOUR BEFORE SEXUAL ACTIVITY
     Route: 048
  23. ALBUTEROL SULFATE. [Concomitant]
     Active Substance: ALBUTEROL SULFATE
     Dosage: 4 DOSAGE FORM (4 PUFFS), ONCE; GIVE IN PFT CLINIC FOR SPIROMERY WITH PRE/POST BRONCODILATOR
     Dates: start: 20161123
  24. LORAZEPAM. [Concomitant]
     Active Substance: LORAZEPAM
     Dosage: 0.5 MG, 1X/DAY AT BEDTIME FOR NERVES
     Route: 048

REACTIONS (14)
  - Skin laceration [Recovering/Resolving]
  - Dyspnoea [Unknown]
  - Periodontal disease [Unknown]
  - Dental caries [Recovered/Resolved]
  - Thrombosis [Unknown]
  - Ejection fraction decreased [Unknown]
  - Rhinitis allergic [Unknown]
  - Off label use [Recovered/Resolved]
  - Chronic obstructive pulmonary disease [Unknown]
  - Hypotension [Unknown]
  - Atrial fibrillation [Unknown]
  - Chest pain [Unknown]
  - Arterial occlusive disease [Unknown]
  - Intermittent claudication [Unknown]

NARRATIVE: CASE EVENT DATE: 2016
